FAERS Safety Report 7278565-4 (Version None)
Quarter: 2011Q1

REPORT INFORMATION
  Report Type: 
  Country: None (occurrence: None)
  Receive Date: 20110207
  Receipt Date: 20110131
  Transmission Date: 20110831
  Serious: Yes (Death)
  Sender: FDA-Public Use
  Company Number: CHPA2011US01892

PATIENT
  Age: 43 Year
  Sex: Female

DRUGS (4)
  1. METFORMIN HCL [Suspect]
     Dosage: UNK
     Route: 048
  2. IBUPROFEN [Suspect]
     Route: 048
  3. CLONAZEPAM [Suspect]
     Route: 048
  4. QUETIAPINE [Suspect]
     Route: 048

REACTIONS (1)
  - INTENTIONAL DRUG MISUSE [None]
